FAERS Safety Report 14208087 (Version 1)
Quarter: 2017Q4

REPORT INFORMATION
  Report Type: Spontaneous
  Country: SE (occurrence: SE)
  Receive Date: 20171121
  Receipt Date: 20171121
  Transmission Date: 20180321
  Serious: Yes (Hospitalization)
  Sender: FDA-Public Use
  Company Number: SE-009507513-1711SWE007604

PATIENT
  Age: 74 Year
  Sex: Female

DRUGS (3)
  1. MYSOLINE [Concomitant]
     Active Substance: PRIMIDONE
     Indication: EPILEPSY
     Dosage: UNK
     Dates: start: 2012
  2. LEVAXIN [Concomitant]
     Active Substance: LEVOTHYROXINE SODIUM
     Indication: HYPOTHYROIDISM
  3. KEYTRUDA [Suspect]
     Active Substance: PEMBROLIZUMAB
     Indication: NON-SMALL CELL LUNG CANCER
     Dosage: 200 MG, Q3W
     Route: 042
     Dates: start: 201709, end: 201709

REACTIONS (4)
  - Chest discomfort [Unknown]
  - Neuropathy peripheral [Not Recovered/Not Resolved]
  - Colitis [Not Recovered/Not Resolved]
  - Cranial nerve disorder [Not Recovered/Not Resolved]

NARRATIVE: CASE EVENT DATE: 201709
